FAERS Safety Report 7385945-5 (Version None)
Quarter: 2011Q1

REPORT INFORMATION
  Report Type: 
  Country: None (occurrence: None)
  Receive Date: 20110331
  Receipt Date: 20110318
  Transmission Date: 20110831
  Serious: No
  Sender: FDA-Public Use
  Company Number: US-ASTRAZENECA-2008UW09551

PATIENT
  Age: 52 Year
  Sex: Male
  Weight: 81.6 kg

DRUGS (2)
  1. SEROQUEL [Suspect]
     Indication: SLEEP DISORDER
     Dosage: 600 MG DAILY
     Route: 048
     Dates: start: 20041001
  2. SEROQUEL [Suspect]
     Indication: DEPRESSION
     Dosage: 600 MG DAILY
     Route: 048
     Dates: start: 20041001

REACTIONS (5)
  - GLYCOSURIA [None]
  - HYPERLIPIDAEMIA [None]
  - TYPE 2 DIABETES MELLITUS [None]
  - BLOOD CHOLESTEROL INCREASED [None]
  - HYPERGLYCAEMIA [None]
